FAERS Safety Report 5986932-1 (Version None)
Quarter: 2008Q4

REPORT INFORMATION
  Report Type: 
  Country: None (occurrence: None)
  Receive Date: 20081209
  Receipt Date: 20081202
  Transmission Date: 20090506
  Serious: Yes (Other)
  Sender: FDA-Public Use
  Company Number: US-ABBOTT-08P-163-0485503-00

PATIENT
  Age: 66 Year
  Sex: Male
  Weight: 77.18 kg

DRUGS (3)
  1. HUMIRA [Suspect]
     Indication: SYNOVITIS
     Route: 058
     Dates: start: 20080301
  2. LEFLUNOMIDE [Concomitant]
     Indication: SYNOVITIS
  3. NEBULIZER [Concomitant]
     Indication: DRUG USE FOR UNKNOWN INDICATION

REACTIONS (2)
  - FACIAL PALSY [None]
  - INFLAMMATION [None]
